FAERS Safety Report 23322703 (Version 1)
Quarter: 2023Q4

REPORT INFORMATION
  Report Type: Spontaneous
  Country: US (occurrence: US)
  Receive Date: 20231220
  Receipt Date: 20231220
  Transmission Date: 20240110
  Serious: Yes (Life-Threatening)
  Sender: FDA-Public Use
  Company Number: US-ELI_LILLY_AND_COMPANY-US202312009881

PATIENT
  Age: 3 Year
  Sex: Male

DRUGS (13)
  1. BARICITINIB [Suspect]
     Active Substance: BARICITINIB
     Indication: Product used for unknown indication
     Dosage: 2 MG, BID
     Route: 065
     Dates: start: 20231025
  2. CYCLOSPORINE [Concomitant]
     Active Substance: CYCLOSPORINE
     Indication: Product used for unknown indication
     Dosage: 1 MG/KG, BID
     Route: 065
     Dates: start: 20231029
  3. CYCLOSPORINE [Concomitant]
     Active Substance: CYCLOSPORINE
     Dosage: 2 MG/KG, BID
     Route: 065
     Dates: start: 20231101
  4. METHYLPREDNISOLONE [Concomitant]
     Active Substance: METHYLPREDNISOLONE
     Indication: Product used for unknown indication
     Dosage: 2 MG/KG
     Dates: start: 20231021
  5. METHYLPREDNISOLONE [Concomitant]
     Active Substance: METHYLPREDNISOLONE
     Dosage: 10 MG/KG
     Dates: start: 20231030
  6. METHYLPREDNISOLONE [Concomitant]
     Active Substance: METHYLPREDNISOLONE
     Dosage: 30 MG/KG
     Dates: start: 20231031
  7. METHYLPREDNISOLONE [Concomitant]
     Active Substance: METHYLPREDNISOLONE
     Dosage: 30 MG/KG
     Dates: start: 20231101
  8. METHYLPREDNISOLONE [Concomitant]
     Active Substance: METHYLPREDNISOLONE
     Dosage: 14 MG/KG
     Dates: start: 20231124
  9. EMAPALUMAB [Concomitant]
     Active Substance: EMAPALUMAB
     Indication: Product used for unknown indication
     Dosage: 10 MG/KG, UNKNOWN
     Dates: start: 20231116
  10. EMAPALUMAB [Concomitant]
     Active Substance: EMAPALUMAB
     Dosage: 10 MG/KG, UNKNOWN
     Dates: start: 20231121
  11. AZITHROMYCIN [Concomitant]
     Active Substance: AZITHROMYCIN
     Indication: Product used for unknown indication
     Dosage: UNK
  12. PLASMA-PLEX [Concomitant]
     Active Substance: PLASMA PROTEIN FRACTION (HUMAN)
     Indication: Product used for unknown indication
  13. HYDROCORT [HYDROCORTISONE] [Concomitant]
     Indication: Product used for unknown indication
     Dosage: UNK
     Dates: start: 20231124

REACTIONS (6)
  - Pyrexia [Unknown]
  - White blood cell count increased [Unknown]
  - Serum ferritin increased [Unknown]
  - C-reactive protein increased [Unknown]
  - Pneumocystis jirovecii pneumonia [Unknown]
  - Interleukin level increased [Unknown]

NARRATIVE: CASE EVENT DATE: 20231119
